FAERS Safety Report 8578503-8 (Version None)
Quarter: 2012Q3

REPORT INFORMATION
  Report Type: 
  Country: None (occurrence: None)
  Receive Date: 20120726
  Receipt Date: 20120711
  Transmission Date: 20120928
  Serious: Yes (Hospitalization)
  Sender: FDA-Public Use
  Company Number: UTC-020334

PATIENT
  Age: 62 Year
  Sex: Female
  Weight: 94.09 kg

DRUGS (9)
  1. COUMADIN [Concomitant]
  2. REVATIO [Concomitant]
  3. METOPROLOL TARTRATE [Concomitant]
  4. REMODULIN [Suspect]
     Indication: PULMONARY ARTERIAL HYPERTENSION
     Dosage: SEE IMAGE
     Route: 058
     Dates: start: 20110706
  5. REMODULIN [Suspect]
     Indication: PULMONARY HYPERTENSION
     Dosage: SEE IMAGE
     Route: 058
     Dates: start: 20110706
  6. REMODULIN [Suspect]
     Indication: PULMONARY ARTERIAL HYPERTENSION
     Dosage: SEE IMAGE
     Route: 058
     Dates: start: 20120710
  7. REMODULIN [Suspect]
     Indication: PULMONARY HYPERTENSION
     Dosage: SEE IMAGE
     Route: 058
     Dates: start: 20120710
  8. REMODULIN [Suspect]
     Indication: PULMONARY ARTERIAL HYPERTENSION
     Dosage: SEE IMAGE
     Route: 058
     Dates: start: 20110623
  9. REMODULIN [Suspect]
     Indication: PULMONARY HYPERTENSION
     Dosage: SEE IMAGE
     Route: 058
     Dates: start: 20110623

REACTIONS (5)
  - INFUSION SITE SWELLING [None]
  - INFUSION SITE PRURITUS [None]
  - INFUSION SITE PAIN [None]
  - INFUSION SITE INFECTION [None]
  - INFUSION SITE ERYTHEMA [None]
